FAERS Safety Report 5754560-9 (Version None)
Quarter: 2008Q2

REPORT INFORMATION
  Report Type: 
  Country: None (occurrence: None)
  Receive Date: 20080530
  Receipt Date: 20080519
  Transmission Date: 20081010
  Serious: Yes (Other)
  Sender: FDA-Public Use
  Company Number: US-PFIZER INC-2008042947

PATIENT
  Sex: Female
  Weight: 72.6 kg

DRUGS (13)
  1. CHANTIX [Suspect]
     Indication: SMOKING CESSATION THERAPY
     Dates: start: 20071101, end: 20080401
  2. CRESTOR [Concomitant]
     Indication: BLOOD CHOLESTEROL INCREASED
     Dosage: DAILY DOSE:20MG
  3. PROZAC [Concomitant]
  4. FISH OIL [Concomitant]
  5. TPN [Concomitant]
  6. CLONIDINE [Concomitant]
  7. NYSTATIN [Concomitant]
  8. ACETYLSALICYLIC ACID SRT [Concomitant]
  9. FOSAMAX [Concomitant]
  10. NEURONTIN [Concomitant]
  11. MAGNESIUM [Concomitant]
  12. ZINC [Concomitant]
  13. LORTAB [Concomitant]

REACTIONS (2)
  - HYSTERECTOMY [None]
  - NAUSEA [None]
